FAERS Safety Report 7121810-6 (Version None)
Quarter: 2010Q4

REPORT INFORMATION
  Report Type: 
  Country: None (occurrence: None)
  Receive Date: 20101124
  Receipt Date: 20101112
  Transmission Date: 20110411
  Serious: Yes (Hospitalization, Other)
  Sender: FDA-Public Use
  Company Number: PHHY2009CA39746

PATIENT
  Sex: Male

DRUGS (8)
  1. SANDOSTATIN LAR [Suspect]
     Indication: NEUROENDOCRINE TUMOUR
     Dosage: 30 MG EVERY 4 WEEKS
     Route: 030
     Dates: start: 20090910
  2. SANDOSTATIN LAR [Suspect]
     Dosage: 40 MG, EVERY 4 WEEKS
     Route: 030
  3. SANDOSTATIN LAR [Suspect]
     Dosage: 30 MG, TIW
     Route: 030
  4. INSULIN [Concomitant]
  5. FRAGMIN [Concomitant]
  6. PANTOLOC [Concomitant]
     Dosage: 40 MG, 3 PILLS BID
  7. MESALAZINE [Concomitant]
  8. ASPIRIN [Concomitant]
     Dosage: UNK

REACTIONS (13)
  - ABDOMINAL DISCOMFORT [None]
  - COUGH [None]
  - DECREASED APPETITE [None]
  - DIARRHOEA [None]
  - GASTRITIS [None]
  - HYPOPHAGIA [None]
  - INFECTION [None]
  - INJECTION SITE MASS [None]
  - INJECTION SITE PAIN [None]
  - NASOPHARYNGITIS [None]
  - NAUSEA [None]
  - OROPHARYNGEAL PAIN [None]
  - VOMITING [None]
